FAERS Safety Report 14783407 (Version 1)
Quarter: 2018Q2

REPORT INFORMATION
  Report Type: Spontaneous
  Country: US (occurrence: US)
  Receive Date: 20180420
  Receipt Date: 20180420
  Transmission Date: 20180711
  Serious: No
  Sender: FDA-Public Use
  Company Number: US-TEVA-2018-US-871855

PATIENT
  Sex: Female

DRUGS (1)
  1. BUPROPION. [Suspect]
     Active Substance: BUPROPION
     Dosage: 150 MILLIGRAM DAILY;
     Dates: start: 201802, end: 201802

REACTIONS (2)
  - Hypoacusis [Unknown]
  - Tinnitus [Unknown]
